FAERS Safety Report 13648301 (Version 1)
Quarter: 2017Q2

REPORT INFORMATION
  Report Type: Spontaneous
  Country: JP (occurrence: JP)
  Receive Date: 20170613
  Receipt Date: 20170613
  Transmission Date: 20170830
  Serious: Yes (Hospitalization, Other)
  Sender: FDA-Public Use
  Company Number: JP-ELI_LILLY_AND_COMPANY-JP201706002480

PATIENT
  Age: 46 Year
  Sex: Female

DRUGS (2)
  1. PACLITAXEL. [Concomitant]
     Active Substance: PACLITAXEL
     Indication: GASTRIC CANCER
     Dosage: 100 MG, CYCLICAL
     Route: 042
     Dates: start: 20161226, end: 20170510
  2. CYRAMZA [Suspect]
     Active Substance: RAMUCIRUMAB
     Indication: GASTRIC CANCER
     Dosage: 350 MG, CYCLICAL
     Route: 042
     Dates: start: 20161226, end: 20170510

REACTIONS (3)
  - Intestinal perforation [Not Recovered/Not Resolved]
  - Haematochezia [Unknown]
  - Peritonitis [Unknown]

NARRATIVE: CASE EVENT DATE: 20170525
